FAERS Safety Report 13955297 (Version 3)
Quarter: 2018Q2

REPORT INFORMATION
  Report Type: Report from Study
  Country: US (occurrence: US)
  Receive Date: 20170911
  Receipt Date: 20180515
  Transmission Date: 20180711
  Serious: Yes (Hospitalization, Other)
  Sender: FDA-Public Use
  Company Number: PHEH2017US028835

PATIENT
  Age: 56 Year
  Sex: Female

DRUGS (1)
  1. GILENYA [Suspect]
     Active Substance: FINGOLIMOD HYDROCHLORIDE
     Indication: PRODUCT USED FOR UNKNOWN INDICATION
     Dosage: UNK
     Route: 065

REACTIONS (5)
  - Tibia fracture [Unknown]
  - Lower limb fracture [Not Recovered/Not Resolved]
  - Joint effusion [Unknown]
  - Fibula fracture [Unknown]
  - Somnolence [Unknown]

NARRATIVE: CASE EVENT DATE: 20170119
